FAERS Safety Report 25395196 (Version 1)
Quarter: 2025Q2

REPORT INFORMATION
  Report Type: Spontaneous
  Country: PT (occurrence: PT)
  Receive Date: 20250604
  Receipt Date: 20250604
  Transmission Date: 20250716
  Serious: Yes (Other)
  Sender: B BRAUN
  Company Number: PT-B.Braun Medical Inc.-2177991

PATIENT
  Age: 44 Year
  Sex: Female

DRUGS (6)
  1. BUPIVACAINE HYDROCHLORIDE [Suspect]
     Active Substance: BUPIVACAINE HYDROCHLORIDE
     Indication: Anaesthesia
     Dates: start: 20250209, end: 20250209
  2. SUFENTANIL [Suspect]
     Active Substance: SUFENTANIL
  3. Folicil (FOLIC ACID) [Concomitant]
  4. Messalazina (MESALAZINE) [Concomitant]
  5. LEVOTHYROXINE SODIUM [Concomitant]
     Active Substance: LEVOTHYROXINE SODIUM
  6. Yuflyma (ADALIMUMAB) [Concomitant]

REACTIONS (4)
  - Urinary retention [Recovering/Resolving]
  - Neurological procedural complication [Recovering/Resolving]
  - Muscular weakness [Recovering/Resolving]
  - Faecaloma [Recovering/Resolving]
